FAERS Safety Report 14227011 (Version 2)
Quarter: 2018Q1

REPORT INFORMATION
  Report Type: Spontaneous
  Country: US (occurrence: US)
  Receive Date: 20171127
  Receipt Date: 20180209
  Transmission Date: 20180508
  Serious: Yes (Hospitalization, Disabling, Other)
  Sender: FDA-Public Use
  Company Number: US-009507513-1107USA02914

PATIENT
  Sex: Female
  Weight: 47.63 kg

DRUGS (4)
  1. FOSAMAX PLUS D [Suspect]
     Active Substance: ALENDRONATE SODIUM\CHOLECALCIFEROL
     Indication: OSTEOPENIA
     Dosage: 70/2800
     Route: 048
     Dates: start: 20070331, end: 20100324
  2. BONIVA [Suspect]
     Active Substance: IBANDRONATE SODIUM
     Indication: OSTEOPENIA
     Dosage: UNK MG, UNK
     Route: 048
     Dates: start: 20100325, end: 20100428
  3. FOSAMAX [Suspect]
     Active Substance: ALENDRONATE SODIUM
     Indication: OSTEOPENIA
     Dosage: 10 MG, QD
     Route: 048
     Dates: start: 1995, end: 201003
  4. FOSAMAX [Suspect]
     Active Substance: ALENDRONATE SODIUM
     Indication: OSTEOPENIA
     Dosage: 70 MG, QW
     Route: 048
     Dates: start: 200302, end: 20070330

REACTIONS (18)
  - Skeletal injury [Unknown]
  - Pain of skin [Unknown]
  - Back pain [Unknown]
  - Fall [Unknown]
  - Biopsy breast [Unknown]
  - Vitamin D deficiency [Unknown]
  - Arthralgia [Unknown]
  - Malabsorption [Unknown]
  - Femur fracture [Not Recovered/Not Resolved]
  - Colonoscopy [Unknown]
  - Meningioma [Unknown]
  - Blood cholesterol increased [Unknown]
  - Osteoporosis [Unknown]
  - Thyroid cyst [Unknown]
  - Tachycardia [Unknown]
  - Foot deformity [Unknown]
  - Carpal tunnel syndrome [Unknown]
  - Rotator cuff syndrome [Unknown]

NARRATIVE: CASE EVENT DATE: 20070511
